FAERS Safety Report 9256748 (Version 3)
Quarter: 2014Q1

REPORT INFORMATION
  Report Type: Spontaneous
  Country: US (occurrence: US)
  Receive Date: 20130426
  Receipt Date: 20140214
  Transmission Date: 20141002
  Serious: Yes (Hospitalization, Other)
  Sender: FDA-Public Use
  Company Number: US-ASTRAZENECA-2013SE27588

PATIENT
  Age: 50 Year
  Sex: Female

DRUGS (18)
  1. NEXIUM [Suspect]
     Indication: GASTROOESOPHAGEAL REFLUX DISEASE
     Route: 048
     Dates: start: 2003
  2. NEXIUM [Suspect]
     Indication: GASTROOESOPHAGEAL REFLUX DISEASE
     Route: 048
     Dates: start: 20070728
  3. OMEPRAZOLE OTC [Suspect]
     Indication: GASTROOESOPHAGEAL REFLUX DISEASE
     Route: 048
     Dates: start: 2010, end: 2013
  4. ZANTAC OTC [Concomitant]
     Indication: GASTROOESOPHAGEAL REFLUX DISEASE
  5. TUMS [Concomitant]
  6. ROLAIDS [Concomitant]
  7. CYMBALTA [Concomitant]
     Indication: DEPRESSION
  8. LYRICA [Concomitant]
     Indication: FIBROMYALGIA
  9. MICROZIDE [Concomitant]
     Indication: CARDIAC DISORDER
  10. TEGRATOL [Concomitant]
  11. METHOCARBAM [Concomitant]
     Indication: MUSCLE SPASMS
  12. PROZAC [Concomitant]
     Indication: DEPRESSION
  13. NAPROXEN [Concomitant]
     Dates: start: 20060901
  14. LITHIUM [Concomitant]
     Indication: BIPOLAR DISORDER
  15. ABILIFY [Concomitant]
     Indication: DEPRESSION
  16. ZOLOFT [Concomitant]
     Indication: DEPRESSION
  17. ASPIRIN [Concomitant]
     Indication: CARDIAC DISORDER
  18. NIFEDIAC CC [Concomitant]
     Dates: start: 20070807

REACTIONS (18)
  - Spinal compression fracture [Unknown]
  - Chest pain [Unknown]
  - Pelvic fracture [Unknown]
  - Osteoporosis [Unknown]
  - Bone disorder [Unknown]
  - Multiple fractures [Unknown]
  - Hand fracture [Unknown]
  - Rib fracture [Unknown]
  - Fall [Unknown]
  - Pain [Unknown]
  - Osteopenia [Unknown]
  - Calcium deficiency [Unknown]
  - Angina pectoris [Unknown]
  - Hypothyroidism [Unknown]
  - Scoliosis [Unknown]
  - Intervertebral disc protrusion [Unknown]
  - Facet joint syndrome [Unknown]
  - Malaise [Unknown]
